FAERS Safety Report 21233986 (Version 1)
Quarter: 2022Q3

REPORT INFORMATION
  Report Type: Spontaneous
  Country: US (occurrence: None)
  Receive Date: 20220819
  Receipt Date: 20220819
  Transmission Date: 20221027
  Serious: No
  Sender: FDA-Public Use
  Company Number: 2022A287030

PATIENT
  Age: 680 Month
  Sex: Female
  Weight: 72.6 kg

DRUGS (2)
  1. SYMBICORT [Suspect]
     Active Substance: BUDESONIDE\FORMOTEROL FUMARATE DIHYDRATE
     Indication: Asthma
     Dosage: 2 PUFFS 2 TIMES A DAY
     Route: 055
     Dates: start: 2021
  2. SYMBICORT [Suspect]
     Active Substance: BUDESONIDE\FORMOTEROL FUMARATE DIHYDRATE
     Indication: Asthma
     Dosage: 2 INHALATIONS, 3 TIMES A DAY
     Route: 055
     Dates: start: 202206

REACTIONS (5)
  - COVID-19 [Not Recovered/Not Resolved]
  - Dyspnoea [Not Recovered/Not Resolved]
  - Device issue [Unknown]
  - Off label use [Unknown]
  - Device malfunction [Unknown]

NARRATIVE: CASE EVENT DATE: 20220401
